FAERS Safety Report 8305745-9 (Version None)
Quarter: 2012Q2

REPORT INFORMATION
  Report Type: 
  Country: None (occurrence: None)
  Receive Date: 20120423
  Receipt Date: 20120416
  Transmission Date: 20120825
  Serious: Yes (Other)
  Sender: FDA-Public Use
  Company Number: US-ABBOTT-12P-163-0922657-00

PATIENT
  Sex: Female

DRUGS (1)
  1. HUMIRA [Suspect]
     Indication: CROHN'S DISEASE
     Route: 058
     Dates: start: 20120101, end: 20120301

REACTIONS (4)
  - INTESTINAL FISTULA [None]
  - LYMPHOMA [None]
  - CROHN'S DISEASE [None]
  - PLASMACYTOMA [None]
